FAERS Safety Report 6113062-0 (Version None)
Quarter: 2009Q1

REPORT INFORMATION
  Report Type: 
  Country: None (occurrence: None)
  Receive Date: 20090312
  Receipt Date: 20090306
  Transmission Date: 20090719
  Serious: Yes (Other)
  Sender: FDA-Public Use
  Company Number: US-BAYER-200910654BCC

PATIENT
  Age: 43 Year
  Sex: Female
  Weight: 91 kg

DRUGS (13)
  1. PHILLIPS' MILK OF MAGNESIA CHERRY [Suspect]
     Indication: CONSTIPATION
     Dosage: TOTAL DAILY DOSE: 30 ML
     Route: 048
     Dates: start: 20090305
  2. APIDRA [Concomitant]
  3. AMITRIPTYLINE [Concomitant]
  4. RANITIDINE [Concomitant]
  5. LISINOPRIL HCT [Concomitant]
  6. ZETIA [Concomitant]
  7. SYNTHROID [Concomitant]
  8. NEXIUM [Concomitant]
  9. LIPITOR [Concomitant]
  10. CYMBALTA [Concomitant]
  11. FAMILY DOLLAR ASPIRIN [Concomitant]
  12. WESTERN FAMILY MULTIVITAMIN [Concomitant]
  13. NATURES MADE VITAMIN C [Concomitant]

REACTIONS (2)
  - BLOOD GLUCOSE INCREASED [None]
  - EXTRASYSTOLES [None]
